FAERS Safety Report 17106870 (Version 1)
Quarter: 2019Q4

REPORT INFORMATION
  Report Type: Spontaneous
  Country: US (occurrence: US)
  Receive Date: 20191203
  Receipt Date: 20191203
  Transmission Date: 20200122
  Serious: No
  Sender: FDA-Public Use
  Company Number: US-ASTRAZENECA-2019SF68555

PATIENT
  Sex: Male
  Weight: 6 kg

DRUGS (5)
  1. NUTRAMIGEN DHA-ARA 2.8 G/100 LIQUID [Concomitant]
  2. PANTOPRAZOLE [Concomitant]
     Active Substance: PANTOPRAZOLE
  3. SYNAGIS [Suspect]
     Active Substance: PALIVIZUMAB
     Route: 030
     Dates: start: 20190411
  4. EPANED [Concomitant]
     Active Substance: ENALAPRIL MALEATE
  5. LASIX [Concomitant]
     Active Substance: FUROSEMIDE

REACTIONS (1)
  - Rash vesicular [Unknown]
